FAERS Safety Report 25326836 (Version 1)
Quarter: 2025Q2

REPORT INFORMATION
  Report Type: Spontaneous
  Country: CH (occurrence: CH)
  Receive Date: 20250516
  Receipt Date: 20250516
  Transmission Date: 20250717
  Serious: Yes (Other)
  Sender: PRINSTON PHARMACEUTICAL
  Company Number: CH-PRINSTON PHARMACEUTICAL INC.-2025PRN00173

PATIENT
  Age: 52 Year
  Sex: Female

DRUGS (4)
  1. VENLAFAXINE [Suspect]
     Active Substance: VENLAFAXINE HYDROCHLORIDE
     Indication: Migraine
     Dosage: 150 MG, 1X/DAY
  2. ESTROGENS [Concomitant]
     Active Substance: ESTROGENS
  3. PROGESTERONE [Concomitant]
     Active Substance: PROGESTERONE
  4. FREMANEZUMAB [Concomitant]
     Active Substance: FREMANEZUMAB

REACTIONS (2)
  - Hypertrophic cardiomyopathy [Recovered/Resolved]
  - Cardiotoxicity [Recovered/Resolved]
